FAERS Safety Report 5076600-5 (Version None)
Quarter: 2006Q3

REPORT INFORMATION
  Report Type: 
  Country: None (occurrence: None)
  Receive Date: 20060807
  Receipt Date: 20060724
  Transmission Date: 20061208
  Serious: Yes (Other)
  Sender: FDA-Public Use
  Company Number: 2006085264

PATIENT
  Age: 41 Year
  Sex: Female
  Weight: 52 kg

DRUGS (5)
  1. SILDENAFIL                                       (PAH) (SILDENAFIL) [Suspect]
     Indication: PULMONARY HYPERTENSION
     Dosage: 18.75 MG (6.25 MG, 3 IN 1 D), ORAL
     Route: 048
     Dates: start: 20050601
  2. TRACLEER [Suspect]
     Indication: PULMONARY HYPERTENSION
     Dosage: 125 MG, ORAL
     Route: 048
     Dates: start: 20050903
  3. LASIX [Concomitant]
  4. ALDACTONE [Concomitant]
  5. FLOLAN [Concomitant]

REACTIONS (7)
  - ARTHRALGIA [None]
  - BLOOD IMMUNOGLOBULIN A INCREASED [None]
  - BLOOD IMMUNOGLOBULIN G INCREASED [None]
  - HEPATIC FUNCTION ABNORMAL [None]
  - RAYNAUD'S PHENOMENON [None]
  - RED BLOOD CELL SEDIMENTATION RATE INCREASED [None]
  - SCLERODERMA [None]
